FAERS Safety Report 9264942 (Version 1)
Quarter: 2013Q2

REPORT INFORMATION
  Report Type: Spontaneous
  Country: US (occurrence: None)
  Receive Date: 20130426
  Receipt Date: 20130426
  Transmission Date: 20140414
  Serious: Yes (Other)
  Sender: FDA-Public Use
  Company Number: 001516966A

PATIENT
  Age: 22 Year
  Sex: Female

DRUGS (6)
  1. PROACTIV+ SKIN SMOOTHING EXFOLIATOR [Suspect]
     Indication: ACNE
     Route: 061
     Dates: start: 20130314
  2. PROACTIV+ PORE TARGETING TREATMENT [Suspect]
     Indication: ACNE
     Route: 061
     Dates: start: 20130314
  3. PROACTIV+ COMPLEXION PERFECTING HYDRATOR [Suspect]
     Indication: ACNE
     Route: 061
     Dates: start: 20130314
  4. PROACTIV+ MARK FADING PADS [Suspect]
     Indication: ACNE
     Route: 061
     Dates: start: 20130314
  5. PROACTIV+ SKIN PURIFYING MASK [Suspect]
     Indication: ACNE
     Route: 061
     Dates: start: 20130314
  6. ONE A DAY CHEWABLE VITAMIN [Concomitant]

REACTIONS (3)
  - Rash [None]
  - Dyspnoea [None]
  - Hypersensitivity [None]
